FAERS Safety Report 11354723 (Version 1)
Quarter: 2015Q3

REPORT INFORMATION
  Report Type: Spontaneous
  Country: US (occurrence: US)
  Receive Date: 20150807
  Receipt Date: 20150807
  Transmission Date: 20151125
  Serious: No
  Sender: FDA-Public Use
  Company Number: US-JNJFOC-20140916029

PATIENT
  Age: 55 Year
  Sex: Female
  Weight: 59.88 kg

DRUGS (3)
  1. MENS ROGAINE EXTRA STRENGTH [Suspect]
     Active Substance: MINOXIDIL
     Route: 061
  2. MENS ROGAINE EXTRA STRENGTH [Suspect]
     Active Substance: MINOXIDIL
     Indication: HAIR GROWTH ABNORMAL
     Route: 061
  3. PILOCARPINE. [Concomitant]
     Active Substance: PILOCARPINE
     Indication: AUTOIMMUNE DISORDER
     Dosage: SINCE 4 YEARS
     Route: 065

REACTIONS (3)
  - Wrong patient received medication [Not Recovered/Not Resolved]
  - Product quality issue [Not Recovered/Not Resolved]
  - Hair disorder [Not Recovered/Not Resolved]
